FAERS Safety Report 7715329-9 (Version None)
Quarter: 2011Q3

REPORT INFORMATION
  Report Type: 
  Country: None (occurrence: None)
  Receive Date: 20110810
  Receipt Date: 20110607
  Transmission Date: 20111222
  Serious: No
  Sender: FDA-Public Use
  Company Number: 1000021480

PATIENT
  Age: 68 Year
  Sex: Female

DRUGS (5)
  1. INSULIN (INSULIN) (INSULIN) [Concomitant]
  2. AZULFIDINE (SULFASALAZINE) (SULFASALAZINE) [Concomitant]
  3. PREDNISONE [Concomitant]
  4. SAVELLA [Suspect]
     Indication: NEURALGIA
     Dosage: 12.5 MG BID (12.5 MG, 2 IN 1 D), ORAL, ORAL
     Route: 048
     Dates: end: 20110501
  5. SAVELLA [Suspect]
     Indication: NEURALGIA
     Dosage: 12.5 MG BID (12.5 MG, 2 IN 1 D), ORAL, ORAL
     Route: 048
     Dates: start: 20101201

REACTIONS (2)
  - DRY SKIN [None]
  - SKIN EXFOLIATION [None]
